FAERS Safety Report 25257775 (Version 1)
Quarter: 2025Q2

REPORT INFORMATION
  Report Type: Spontaneous
  Country: GB (occurrence: GB)
  Receive Date: 20250430
  Receipt Date: 20250430
  Transmission Date: 20250717
  Serious: Yes (Hospitalization, Other)
  Sender: RANBAXY
  Company Number: GB-SUN PHARMACEUTICAL INDUSTRIES LTD-2025RR-505926

PATIENT
  Age: 62 Year
  Sex: Male

DRUGS (5)
  1. GEMCITABINE [Suspect]
     Active Substance: GEMCITABINE
     Indication: Bladder cancer stage IV
     Route: 065
     Dates: start: 20230720, end: 20231207
  2. APIXABAN [Suspect]
     Active Substance: APIXABAN
     Indication: Product used for unknown indication
     Route: 065
  3. AVELUMAB [Suspect]
     Active Substance: AVELUMAB
     Indication: Bladder cancer stage IV
     Route: 040
     Dates: start: 20240125, end: 20250220
  4. CISPLATIN [Suspect]
     Active Substance: CISPLATIN
     Indication: Bladder cancer stage IV
     Route: 065
     Dates: start: 20230720, end: 20231130
  5. DOXYCYCLINE [Concomitant]
     Active Substance: DOXYCYCLINE
     Indication: Product used for unknown indication
     Route: 065

REACTIONS (3)
  - Haematuria [Recovered/Resolved]
  - Anaemia [Unknown]
  - Transfusion-related circulatory overload [Unknown]

NARRATIVE: CASE EVENT DATE: 20250211
